FAERS Safety Report 4980798-4 (Version None)
Quarter: 2006Q2

REPORT INFORMATION
  Report Type: 
  Country: None (occurrence: None)
  Receive Date: 20060418
  Receipt Date: 20060410
  Transmission Date: 20061013
  Serious: Yes (Other)
  Sender: FDA-Public Use
  Company Number: 223969

PATIENT
  Age: 37 Year
  Sex: Male

DRUGS (1)
  1. XOLAIR [Suspect]
     Dosage: 375 Q2W

REACTIONS (4)
  - CATARACT [None]
  - ECZEMA [None]
  - EYE OPERATION COMPLICATION [None]
  - IMPAIRED HEALING [None]
